FAERS Safety Report 15843735 (Version 1)
Quarter: 2019Q1

REPORT INFORMATION
  Report Type: Spontaneous
  Country: US (occurrence: US)
  Receive Date: 20190118
  Receipt Date: 20190118
  Transmission Date: 20190417
  Serious: No
  Sender: FDA-Public Use
  Company Number: US-SUNOVION-2019SUN000177

PATIENT
  Age: 60 Year
  Sex: Female
  Weight: 56.69 kg

DRUGS (14)
  1. COLCHICINE KENT [Concomitant]
     Indication: BEHCET^S SYNDROME
     Dosage: 0.6 MG, BID (0.6MG TWO A DAY)
     Route: 065
  2. SYMBICORT [Concomitant]
     Active Substance: BUDESONIDE\FORMOTEROL FUMARATE DIHYDRATE
     Dosage: 160 - 4.5 BID
     Route: 065
  3. EFFEXOR [Concomitant]
     Active Substance: VENLAFAXINE HYDROCHLORIDE
     Dosage: 150 MG, BID
     Route: 065
  4. AMITRIPTYLINE HCL [Concomitant]
     Active Substance: AMITRIPTYLINE
     Indication: BEHCET^S SYNDROME
     Dosage: 200 MG, HS
     Route: 065
  5. ZOLPIDEM AN [Concomitant]
     Indication: SLEEP DISORDER
     Dosage: 10MG QHS
     Route: 048
  6. VENTOLIN HFA [Concomitant]
     Active Substance: ALBUTEROL SULFATE
     Dosage: UNK, AS NECESSARY
     Route: 055
  7. LATUDA [Suspect]
     Active Substance: LURASIDONE HYDROCHLORIDE
     Dosage: 20 MG
     Route: 048
  8. OXYCODON [Concomitant]
     Active Substance: OXYCODONE
     Dosage: 10/325MG 1-2 Q 6 HRS
     Route: 065
  9. CENTRUM SILVER [Concomitant]
     Active Substance: MINERALS\VITAMINS
     Dosage: UNK
     Route: 065
  10. COLCHICINE KENT [Concomitant]
     Indication: RAYNAUD^S PHENOMENON
  11. NEXIUM [Concomitant]
     Active Substance: ESOMEPRAZOLE MAGNESIUM
     Indication: ABDOMINAL DISCOMFORT
     Dosage: 40 MG, QD
     Route: 048
  12. EFFEXOR [Concomitant]
     Active Substance: VENLAFAXINE HYDROCHLORIDE
     Dosage: UNK
     Route: 065
  13. MORPHINE SULFATE. [Concomitant]
     Active Substance: MORPHINE SULFATE
     Indication: INTERVERTEBRAL DISC PROTRUSION
     Dosage: 30 MG, BID
     Route: 048
  14. CALCIUM [Concomitant]
     Active Substance: CALCIUM
     Dosage: UNK
     Route: 065

REACTIONS (5)
  - Memory impairment [Unknown]
  - Rash [Recovered/Resolved]
  - Somnolence [Not Recovered/Not Resolved]
  - Urticaria [Unknown]
  - Drug ineffective [Unknown]

NARRATIVE: CASE EVENT DATE: 201901
